FAERS Safety Report 8921206 (Version 1)
Quarter: 2012Q4

REPORT INFORMATION
  Report Type: 
  Country: AU (occurrence: AU)
  Receive Date: 20121121
  Receipt Date: 20121121
  Transmission Date: 20130627
  Serious: Yes (Other)
  Sender: FDA-Public Use
  Company Number: AU-GLAXOSMITHKLINE-B0846114A

PATIENT
  Age: 22 Year
  Sex: Male

DRUGS (1)
  1. NICABATE [Suspect]
     Indication: EX-TOBACCO USER
     Route: 002
     Dates: start: 20121106, end: 20121106

REACTIONS (9)
  - Deafness [Recovered/Resolved]
  - Vision blurred [Recovered/Resolved]
  - Heart rate increased [Recovered/Resolved]
  - Muscular weakness [Recovered/Resolved]
  - Dizziness [Recovered/Resolved]
  - Erythema [Recovered/Resolved]
  - Cheilitis [Recovered/Resolved]
  - Cold sweat [Recovered/Resolved]
  - Dysstasia [Recovered/Resolved]
